FAERS Safety Report 19223615 (Version 2)
Quarter: 2021Q2

REPORT INFORMATION
  Report Type: Spontaneous
  Country: JP (occurrence: JP)
  Receive Date: 20210506
  Receipt Date: 20210527
  Transmission Date: 20210717
  Serious: Yes (Life-Threatening, Hospitalization)
  Sender: FDA-Public Use
  Company Number: JP-ELI_LILLY_AND_COMPANY-JP202104013551

PATIENT
  Age: 72 Year
  Sex: Male

DRUGS (7)
  1. MECOBALAMIN [Concomitant]
     Active Substance: METHYLCOBALAMIN
  2. MAGNESIUM OXIDE. [Concomitant]
     Active Substance: MAGNESIUM OXIDE
  3. LIMAPROST ALFADEX [Concomitant]
     Active Substance: LIMAPROST
  4. THYRADIN S [Concomitant]
     Active Substance: LEVOTHYROXINE SODIUM
  5. PARIET [Concomitant]
     Active Substance: RABEPRAZOLE SODIUM
  6. OLMESARTAN [Concomitant]
     Active Substance: OLMESARTAN
  7. DULOXETINE HYDROCHLORIDE. [Suspect]
     Active Substance: DULOXETINE HYDROCHLORIDE
     Indication: SPINAL STENOSIS
     Dosage: 20 MG, DAILY
     Route: 048
     Dates: start: 20210413, end: 20210415

REACTIONS (3)
  - Off label use [Unknown]
  - Loss of consciousness [Recovered/Resolved]
  - Body temperature decreased [Unknown]

NARRATIVE: CASE EVENT DATE: 20210415
